FAERS Safety Report 19247912 (Version 1)
Quarter: 2021Q2

REPORT INFORMATION
  Report Type: Spontaneous
  Country: US (occurrence: US)
  Receive Date: 20210512
  Receipt Date: 20210512
  Transmission Date: 20210717
  Serious: Yes (Other)
  Sender: FDA-Public Use
  Company Number: US-LANNETT COMPANY, INC.-US-2021LAN000148

PATIENT
  Sex: Female

DRUGS (1)
  1. LEVOTHYROXINE SODIUM. [Suspect]
     Active Substance: LEVOTHYROXINE SODIUM
     Indication: PRODUCT USED FOR UNKNOWN INDICATION
     Dosage: UNK
     Route: 065
     Dates: start: 2021

REACTIONS (5)
  - Autoimmune thyroiditis [Unknown]
  - Stress [Unknown]
  - Drug ineffective [Unknown]
  - Alopecia [Unknown]
  - Weight increased [Unknown]

NARRATIVE: CASE EVENT DATE: 2021
